FAERS Safety Report 7934724-6 (Version None)
Quarter: 2011Q4

REPORT INFORMATION
  Report Type: 
  Country: None (occurrence: None)
  Receive Date: 20111122
  Receipt Date: 20110915
  Transmission Date: 20120403
  Serious: Yes (Death, Disabling)
  Sender: FDA-Public Use
  Company Number: PHHO2011US07540

PATIENT
  Sex: Male

DRUGS (8)
  1. LEXAPRO [Concomitant]
  2. XANAX [Concomitant]
  3. INTERFERON [Concomitant]
     Dosage: UNK
     Route: 058
     Dates: start: 20010121, end: 20010301
  4. GLEEVEC [Suspect]
     Indication: CHRONIC MYELOID LEUKAEMIA
     Dosage: 400 MG, QD
     Route: 048
     Dates: start: 20010426
  5. CARDURA [Concomitant]
  6. CEFTIN [Concomitant]
  7. TOPROL-XL [Concomitant]
  8. ASPIRIN [Concomitant]

REACTIONS (3)
  - AMYOTROPHIC LATERAL SCLEROSIS [None]
  - DEPRESSION [None]
  - NEUROLOGICAL DECOMPENSATION [None]
